FAERS Safety Report 13111949 (Version 1)
Quarter: 2017Q1

REPORT INFORMATION
  Report Type: Report from Study
  Country: US (occurrence: US)
  Receive Date: 20170113
  Receipt Date: 20170113
  Transmission Date: 20170428
  Serious: Yes (Other)
  Sender: FDA-Public Use
  Company Number: US-AMGEN-USASL2017002761

PATIENT
  Age: 70 Year
  Sex: Female

DRUGS (1)
  1. REPATHA [Suspect]
     Active Substance: EVOLOCUMAB
     Indication: BLOOD CHOLESTEROL INCREASED
     Dosage: 140 MG, TWICE MONTHLY
     Route: 065

REACTIONS (3)
  - Sinusitis [Unknown]
  - Lung infection [Unknown]
  - Hypertension [Unknown]

NARRATIVE: CASE EVENT DATE: 2016
